FAERS Safety Report 9632018 (Version 1)
Quarter: 2013Q4

REPORT INFORMATION
  Report Type: Spontaneous
  Country: US (occurrence: None)
  Receive Date: 20131017
  Receipt Date: 20131017
  Transmission Date: 20140711
  Serious: Yes (Hospitalization, Disabling)
  Sender: FDA-Public Use
  Company Number: None

PATIENT
  Age: 30 Year
  Sex: Male
  Weight: 81.65 kg

DRUGS (2)
  1. CLONAZEPAM [Suspect]
     Indication: INSOMNIA
     Dosage: 2 PILLS AS NEEDED TAKEN BY MOUTH
     Route: 048
     Dates: start: 20110501, end: 20131016
  2. CLONAZEPAM [Suspect]
     Indication: ANXIETY
     Dosage: 2 PILLS AS NEEDED TAKEN BY MOUTH
     Route: 048
     Dates: start: 20110501, end: 20131016

REACTIONS (16)
  - Skin discolouration [None]
  - Local swelling [None]
  - Angina pectoris [None]
  - Chest pain [None]
  - Vomiting [None]
  - Tremor [None]
  - Muscle spasms [None]
  - Superficial vein prominence [None]
  - Blood creatine phosphokinase increased [None]
  - Treatment noncompliance [None]
  - Drug administration error [None]
  - Drug dependence [None]
  - Drug withdrawal syndrome [None]
  - Hypertonic bladder [None]
  - Irritable bowel syndrome [None]
  - Pain [None]
